FAERS Safety Report 5483755-7 (Version None)
Quarter: 2007Q4

REPORT INFORMATION
  Report Type: 
  Country: None (occurrence: None)
  Receive Date: 20071012
  Receipt Date: 20071010
  Transmission Date: 20080405
  Serious: Yes (Death)
  Sender: FDA-Public Use
  Company Number: A0644319A

PATIENT
  Age: 56 Year
  Sex: Female
  Weight: 57.7 kg

DRUGS (24)
  1. ADVAIR DISKUS 100/50 [Suspect]
     Indication: ASTHMA
     Dosage: 1PUFF TWICE PER DAY
     Route: 055
     Dates: start: 20051219, end: 20051219
  2. PACEMAKER PLACEMENT [Concomitant]
  3. LEVOPHED [Concomitant]
  4. ATROVENT [Concomitant]
     Dates: start: 20051219
  5. NYSTATIN [Concomitant]
  6. XOPENEX [Concomitant]
  7. ROBITUSSIN [Concomitant]
  8. RESTORIL [Concomitant]
  9. HEPARIN [Concomitant]
  10. LOVENOX [Concomitant]
  11. LIPITOR [Concomitant]
  12. ZOSYN [Concomitant]
  13. COREG [Concomitant]
  14. MAGNESIUM SULFATE [Concomitant]
  15. PANTOPRAZOLE SODIUM [Concomitant]
  16. PLAVIX [Concomitant]
  17. PROTONIX [Concomitant]
  18. AMIODARONE HCL [Concomitant]
  19. ENALAPRIL MALEATE [Concomitant]
  20. LASIX [Concomitant]
  21. K-DUR 10 [Concomitant]
  22. MECHANICAL VENTILATION [Concomitant]
  23. REOPRO [Concomitant]
  24. DOPAMINE HCL [Concomitant]

REACTIONS (14)
  - ALTERED STATE OF CONSCIOUSNESS [None]
  - BRADYCARDIA [None]
  - BRONCHOSPASM [None]
  - CARDIO-RESPIRATORY ARREST [None]
  - CARDIOGENIC SHOCK [None]
  - CORONARY ARTERY DISEASE [None]
  - DYSPNOEA [None]
  - MITRAL VALVE INCOMPETENCE [None]
  - MYOCARDIAL INFARCTION [None]
  - RESPIRATORY ARREST [None]
  - RESPIRATORY DISTRESS [None]
  - RESPIRATORY FAILURE [None]
  - SINUS TACHYCARDIA [None]
  - VOMITING [None]
